FAERS Safety Report 5315396-6 (Version None)
Quarter: 2007Q2

REPORT INFORMATION
  Report Type: 
  Country: None (occurrence: None)
  Receive Date: 20070503
  Receipt Date: 20070424
  Transmission Date: 20071010
  Serious: Yes (Hospitalization)
  Sender: FDA-Public Use
  Company Number: PHEH2007US04088

PATIENT
  Age: 71 Year
  Sex: Female

DRUGS (3)
  1. LIPITOR [Suspect]
     Dosage: 10 MG, QD
     Route: 048
  2. LIPITOR [Suspect]
     Dosage: 40 MG, QD
     Route: 048
  3. ZELNORM [Suspect]
     Indication: BOWEL MOVEMENT IRREGULARITY
     Dosage: 1 TABLET, QD
     Route: 048
     Dates: start: 20070101, end: 20070402

REACTIONS (3)
  - ARTHRITIS [None]
  - CHEST PAIN [None]
  - NAUSEA [None]
